FAERS Safety Report 25145494 (Version 1)
Quarter: 2025Q2

REPORT INFORMATION
  Report Type: Spontaneous
  Country: US (occurrence: US)
  Receive Date: 20250401
  Receipt Date: 20250401
  Transmission Date: 20250717
  Serious: Yes (Life-Threatening, Hospitalization)
  Sender: MYLAN
  Company Number: US-MYLANLABS-2025M1027097

PATIENT
  Age: 27 Year
  Sex: Female

DRUGS (1)
  1. EPINEPHRINE [Suspect]
     Active Substance: EPINEPHRINE
     Indication: Anaphylactic reaction

REACTIONS (4)
  - Arteriospasm coronary [Recovered/Resolved]
  - Cardiogenic shock [Recovered/Resolved]
  - Incorrect route of product administration [Recovered/Resolved]
  - Accidental overdose [Recovered/Resolved]
